FAERS Safety Report 11391122 (Version 1)
Quarter: 2015Q3

REPORT INFORMATION
  Report Type: Spontaneous
  Country: US (occurrence: US)
  Receive Date: 20150818
  Receipt Date: 20150818
  Transmission Date: 20151125
  Serious: No
  Sender: FDA-Public Use
  Company Number: US-ELI_LILLY_AND_COMPANY-US201508000718

PATIENT
  Age: 66 Year
  Sex: Male

DRUGS (3)
  1. TRULICITY [Suspect]
     Active Substance: DULAGLUTIDE
     Indication: TYPE 1 DIABETES MELLITUS
     Dosage: UNK, UNKNOWN
     Route: 065
     Dates: start: 201507
  2. LANTUS [Concomitant]
     Active Substance: INSULIN GLARGINE
     Indication: PRODUCT USED FOR UNKNOWN INDICATION
     Dosage: 20 IU, QD
     Route: 065
  3. HUMALOG [Concomitant]
     Active Substance: INSULIN LISPRO
     Indication: PRODUCT USED FOR UNKNOWN INDICATION
     Dosage: 6 IU, OTHER
     Route: 065

REACTIONS (6)
  - Feeding disorder [Recovered/Resolved]
  - Nausea [Unknown]
  - Decreased appetite [Recovered/Resolved]
  - Blood insulin abnormal [Unknown]
  - Off label use [Unknown]
  - Insulin C-peptide decreased [Unknown]

NARRATIVE: CASE EVENT DATE: 201507
